FAERS Safety Report 9576128 (Version 1)
Quarter: 2013Q4

REPORT INFORMATION
  Report Type: Spontaneous
  Country: US (occurrence: US)
  Receive Date: 20131001
  Receipt Date: 20131001
  Transmission Date: 20140711
  Serious: No
  Sender: FDA-Public Use
  Company Number: US-AMGEN-USASP2013001151

PATIENT
  Age: 63 Year
  Sex: Female
  Weight: 63.49 kg

DRUGS (10)
  1. ENBREL [Suspect]
     Indication: RHEUMATOID ARTHRITIS
     Dosage: 50 MG, QWK
  2. ZOCOR [Concomitant]
     Dosage: 5 MG, UNK
  3. METHOTREXATE [Concomitant]
     Dosage: 2.5 MG, UNK
  4. ASPIRIN LOW [Concomitant]
     Dosage: 81 MG, EC
  5. OSCAL 500 [Concomitant]
     Dosage: UNK
  6. D-3 [Concomitant]
     Dosage: 200
  7. VITAMIN D                          /00107901/ [Concomitant]
     Dosage: 400 UNIT, UNK
  8. FISH OIL [Concomitant]
     Dosage: UNK
  9. FOLIC ACID [Concomitant]
     Dosage: UNK
  10. MAGNESIUM OXIDE [Concomitant]
     Dosage: 400 MG, UNK

REACTIONS (2)
  - Fatigue [Unknown]
  - Gastrooesophageal reflux disease [Unknown]
